FAERS Safety Report 6818967-0 (Version None)
Quarter: 2010Q3

REPORT INFORMATION
  Report Type: 
  Country: None (occurrence: None)
  Receive Date: 20100707
  Receipt Date: 20100302
  Transmission Date: 20110219
  Serious: Yes (Other)
  Sender: FDA-Public Use
  Company Number: US-ASTRAZENECA-2010SE30759

PATIENT
  Sex: Male

DRUGS (9)
  1. SEROQUEL [Suspect]
     Route: 048
     Dates: start: 20050115
  2. ZOLOFT [Concomitant]
     Dates: start: 20050201
  3. CYCLOBENZAPRINE [Concomitant]
     Dates: start: 20050131
  4. SONATA [Concomitant]
     Dates: start: 20050201
  5. VYTORIN [Concomitant]
     Dosage: 10MG-40 MG,QD
     Route: 048
     Dates: start: 20061024
  6. METFORMIN HCL [Concomitant]
     Route: 048
     Dates: start: 20061024
  7. LUNESTA [Concomitant]
     Route: 048
     Dates: start: 20061002
  8. XANAX [Concomitant]
     Route: 048
     Dates: start: 20061003
  9. LYRICA [Concomitant]
     Route: 048
     Dates: start: 20070808

REACTIONS (16)
  - AFFECTIVE DISORDER [None]
  - BENIGN PROSTATIC HYPERPLASIA [None]
  - BRONCHIAL HYPERREACTIVITY [None]
  - DIABETES MELLITUS [None]
  - EMPHYSEMA [None]
  - ERECTILE DYSFUNCTION [None]
  - ESSENTIAL HYPERTENSION [None]
  - FATIGUE [None]
  - MALAISE [None]
  - NEUROPATHY PERIPHERAL [None]
  - OBESITY [None]
  - OTITIS MEDIA [None]
  - OVERWEIGHT [None]
  - PRESYNCOPE [None]
  - RESPIRATORY DISORDER [None]
  - RESTLESS LEGS SYNDROME [None]
